FAERS Safety Report 8926593 (Version 1)
Quarter: 2012Q4

REPORT INFORMATION
  Report Type: 
  Country: US (occurrence: US)
  Receive Date: 20121127
  Receipt Date: 20121127
  Transmission Date: 20130627
  Serious: No
  Sender: FDA-Public Use
  Company Number: US-PFIZER INC-2012294085

PATIENT
  Age: 69 Year
  Sex: Female

DRUGS (2)
  1. CELEBREX [Suspect]
  2. NEURONTIN [Suspect]

REACTIONS (1)
  - Drug hypersensitivity [Unknown]
